FAERS Safety Report 12968257 (Version 2)
Quarter: 2016Q4

REPORT INFORMATION
  Report Type: Spontaneous
  Country: US (occurrence: US)
  Receive Date: 20161123
  Receipt Date: 20161219
  Transmission Date: 20170207
  Serious: Yes (Other)
  Sender: FDA-Public Use
  Company Number: US-BAYER-2016-222575

PATIENT
  Age: 61 Year
  Sex: Male

DRUGS (2)
  1. BAYER GENUINE ASPIRIN [Suspect]
     Active Substance: ASPIRIN
  2. LOVENOX [Interacting]
     Active Substance: ENOXAPARIN SODIUM

REACTIONS (4)
  - Haemorrhage [None]
  - Labelled drug-drug interaction medication error [None]
  - Drug administration error [None]
  - Contusion [None]
